FAERS Safety Report 7514162-0 (Version None)
Quarter: 2011Q2

REPORT INFORMATION
  Report Type: 
  Country: None (occurrence: None)
  Receive Date: 20110531
  Receipt Date: 20110523
  Transmission Date: 20111010
  Serious: Yes (Other)
  Sender: FDA-Public Use
  Company Number: BR-SANOFI-AVENTIS-2011SA032607

PATIENT
  Sex: Male
  Weight: 66 kg

DRUGS (10)
  1. PLAVIX [Concomitant]
     Indication: DIURETIC THERAPY
     Route: 048
     Dates: start: 20080101
  2. MULTI-VITAMINS [Concomitant]
     Indication: VITAMIN SUPPLEMENTATION
     Dosage: BEFORE LUNCH AND BEFORE DINNER
     Route: 048
     Dates: start: 20080101
  3. RENAGEL [Concomitant]
     Indication: BLOOD PHOSPHORUS INCREASED
     Route: 048
     Dates: start: 20080101
  4. LOSARTAN POTASSIUM [Concomitant]
     Indication: HYPERTENSION
     Route: 048
  5. OMEPRAZOLE [Concomitant]
     Indication: GASTRIC DISORDER
     Route: 048
  6. SOLOSTAR [Suspect]
  7. VYTORIN [Concomitant]
     Dosage: 10/80 MG TABLET
     Route: 048
     Dates: start: 20080101
  8. PREDNISONE [Concomitant]
     Indication: ANTIINFLAMMATORY THERAPY
     Route: 048
     Dates: start: 20110401
  9. LANTUS [Suspect]
     Indication: TYPE 2 DIABETES MELLITUS
     Route: 058
  10. METOPROLOL SUCCINATE [Concomitant]
     Indication: ARRHYTHMIA
     Route: 048

REACTIONS (10)
  - OPTIC NEURITIS [None]
  - WEIGHT INCREASED [None]
  - UNEVALUABLE EVENT [None]
  - EYE HAEMORRHAGE [None]
  - CATARACT [None]
  - RENAL FAILURE [None]
  - HYPERGLYCAEMIA [None]
  - CORONARY ARTERY DISEASE [None]
  - STRABISMUS [None]
  - DIABETIC NEUROPATHY [None]
